FAERS Safety Report 5826163-9 (Version None)
Quarter: 2008Q2

REPORT INFORMATION
  Report Type: 
  Country: None (occurrence: None)
  Receive Date: 20080601
  Receipt Date: 20080215
  Transmission Date: 20081010
  Serious: No
  Sender: FDA-Public Use
  Company Number: US200802003845

PATIENT
  Age: 58 Year
  Sex: Male
  Weight: 127 kg

DRUGS (12)
  1. BYETTA [Suspect]
     Indication: TYPE 2 DIABETES MELLITUS
     Dosage: 5 UG, 2/D, SUBCUTANEOUS ; 10 UG, 2/D, SUBCUTANEOUS
     Route: 058
     Dates: start: 20080102, end: 20080201
  2. BYETTA [Suspect]
     Indication: TYPE 2 DIABETES MELLITUS
     Dosage: 5 UG, 2/D, SUBCUTANEOUS ; 10 UG, 2/D, SUBCUTANEOUS
     Route: 058
     Dates: start: 20080201
  3. METFORMIN HCL [Concomitant]
  4. ANTI-DIABETICS [Concomitant]
  5. DIOVAN /SCH/ (VALSARTAN) [Concomitant]
  6. SULAR [Concomitant]
  7. SYNTHROID [Concomitant]
  8. VITAMIN D [Concomitant]
  9. IBUPROFEN [Concomitant]
  10. ALLOPURINOL [Concomitant]
  11. ULTRACET [Concomitant]
  12. POTASSIUM CITRATE [Concomitant]

REACTIONS (7)
  - BLOOD PRESSURE DECREASED [None]
  - BLOOD PRESSURE INCREASED [None]
  - CAROTID ARTERY DISEASE [None]
  - DIZZINESS [None]
  - HEADACHE [None]
  - NECK PAIN [None]
  - WEIGHT DECREASED [None]
